FAERS Safety Report 18572765 (Version 10)
Quarter: 2021Q1

REPORT INFORMATION
  Report Type: Report from Study
  Country: CA (occurrence: CA)
  Receive Date: 20201202
  Receipt Date: 20210330
  Transmission Date: 20210419
  Serious: Yes (Other)
  Sender: FDA-Public Use
  Company Number: CA-JNJFOC-20201116647

PATIENT
  Age: 73 Year
  Sex: Male

DRUGS (4)
  1. ZYTIGA [Suspect]
     Active Substance: ABIRATERONE ACETATE
     Indication: PROSTATE CANCER METASTATIC
     Route: 048
     Dates: start: 20201102, end: 20201106
  2. ZYTIGA [Suspect]
     Active Substance: ABIRATERONE ACETATE
     Route: 048
     Dates: start: 20210107, end: 202101
  3. ZYTIGA [Suspect]
     Active Substance: ABIRATERONE ACETATE
     Dosage: LOWER DOSE
     Route: 048
     Dates: start: 202011
  4. ZYTIGA [Suspect]
     Active Substance: ABIRATERONE ACETATE
     Route: 048
     Dates: start: 20210118

REACTIONS (13)
  - Insomnia [Unknown]
  - Feeling cold [Unknown]
  - Heart rate irregular [Recovering/Resolving]
  - Oedema peripheral [Not Recovered/Not Resolved]
  - Malaise [Unknown]
  - Heart rate increased [Recovering/Resolving]
  - Incorrect dose administered [Unknown]
  - Dizziness [Recovered/Resolved]
  - Gait disturbance [Unknown]
  - Off label use [Unknown]
  - Tremor [Unknown]
  - Pollakiuria [Recovering/Resolving]
  - Dyspnoea [Unknown]

NARRATIVE: CASE EVENT DATE: 202011
